FAERS Safety Report 4809186-8 (Version None)
Quarter: 2005Q4

REPORT INFORMATION
  Report Type: 
  Country: None (occurrence: None)
  Receive Date: 20051025
  Receipt Date: 20050923
  Transmission Date: 20060501
  Serious: Yes (Life-Threatening, Hospitalization)
  Sender: FDA-Public Use
  Company Number: US-BRISTOL-MYERS SQUIBB COMPANY-13120928

PATIENT
  Age: 53 Year
  Sex: Male
  Weight: 95 kg

DRUGS (5)
  1. ERBITUX [Suspect]
     Indication: COLORECTAL CANCER
     Dosage: DOSING: 850 MG.
     Route: 042
     Dates: start: 20050922, end: 20050922
  2. DIPHENHYDRAMINE HCL [Concomitant]
     Indication: PREMEDICATION
     Route: 042
     Dates: start: 20050922, end: 20050922
  3. ZOFRAN [Concomitant]
     Indication: PREMEDICATION
     Dates: start: 20050922, end: 20050922
  4. ENALAPRIL [Concomitant]
     Dosage: DOSAGE FORM = 1 TABLET
     Route: 048
  5. XELODA [Concomitant]

REACTIONS (3)
  - ANAPHYLACTIC REACTION [None]
  - PULSE ABNORMAL [None]
  - RESPIRATORY ARREST [None]
